FAERS Safety Report 16420680 (Version 1)
Quarter: 2019Q2

REPORT INFORMATION
  Report Type: Spontaneous
  Country: US (occurrence: US)
  Receive Date: 20190506
  Receipt Date: 20190506
  Transmission Date: 20190711
  Serious: No
  Sender: FDA-Public Use
  Company Number: None

PATIENT
  Age: 66 Year
  Sex: Female

DRUGS (4)
  1. FORTEO [Suspect]
     Active Substance: TERIPARATIDE
     Indication: OSTEOPOROSIS
     Route: 058
     Dates: start: 201811
  2. FORTEO [Suspect]
     Active Substance: TERIPARATIDE
     Indication: PSORIATIC ARTHROPATHY
     Route: 058
     Dates: start: 201811
  3. COSENTYX [Suspect]
     Active Substance: SECUKINUMAB
     Indication: PSORIATIC ARTHROPATHY
     Dosage: ?          OTHER FREQUENCY:EVERY 4 WKS AS DIR;?
     Route: 058
     Dates: start: 201903
  4. COSENTYX [Suspect]
     Active Substance: SECUKINUMAB
     Indication: OSTEOPOROSIS
     Dosage: ?          OTHER FREQUENCY:EVERY 4 WKS AS DIR;?
     Route: 058
     Dates: start: 201903

REACTIONS (1)
  - Lung operation [None]
